FAERS Safety Report 18495169 (Version 2)
Quarter: 2020Q4

REPORT INFORMATION
  Report Type: Spontaneous
  Country: GR (occurrence: GR)
  Receive Date: 20201112
  Receipt Date: 20201217
  Transmission Date: 20210114
  Serious: Yes (Other)
  Sender: FDA-Public Use
  Company Number: GR-PFIZER INC-2020443043

PATIENT
  Age: 65 Year
  Sex: Female

DRUGS (8)
  1. ATORVASTATIN CALCIUM. [Suspect]
     Active Substance: ATORVASTATIN CALCIUM
     Dosage: 40 MG
  2. EPLERENONE. [Suspect]
     Active Substance: EPLERENONE
     Dosage: 25 MG
  3. PANTOPRAZOLE [Suspect]
     Active Substance: PANTOPRAZOLE
     Dosage: 40 MG
  4. ASA [Suspect]
     Active Substance: ASPIRIN
     Dosage: 100 MG
  5. CLOPIDOGREL [Suspect]
     Active Substance: CLOPIDOGREL BISULFATE
     Dosage: 75 MG
  6. RAMIPRIL. [Suspect]
     Active Substance: RAMIPRIL
     Dosage: 5 MG
  7. FUROSEMIDE. [Suspect]
     Active Substance: FUROSEMIDE
     Dosage: 40 MG
  8. CARVEDILOL. [Suspect]
     Active Substance: CARVEDILOL
     Dosage: 12.5 MG

REACTIONS (16)
  - Weight decreased [Unknown]
  - Atrial fibrillation [Unknown]
  - Condition aggravated [Unknown]
  - Hypotension [Unknown]
  - Dyspnoea [Unknown]
  - Vomiting [Unknown]
  - Electrolyte imbalance [Unknown]
  - Ischaemia [Unknown]
  - Sinus tachycardia [Unknown]
  - Treatment noncompliance [Unknown]
  - Epigastric discomfort [Unknown]
  - Fatigue [Unknown]
  - Oedema peripheral [Unknown]
  - Feeding disorder [Unknown]
  - Chest discomfort [Unknown]
  - Back pain [Unknown]

NARRATIVE: CASE EVENT DATE: 201606
